FAERS Safety Report 9031508 (Version 1)
Quarter: 2013Q1

REPORT INFORMATION
  Report Type: Spontaneous
  Country: US (occurrence: US)
  Receive Date: 20130124
  Receipt Date: 20130124
  Transmission Date: 20140127
  Serious: No
  Sender: FDA-Public Use
  Company Number: US-VERTEX PHARMACEUTICALS INC.-2013-001064

PATIENT
  Sex: Male

DRUGS (3)
  1. INCIVEK [Suspect]
     Indication: HEPATITIS C
     Dosage: 750 MG, TID
     Route: 048
     Dates: start: 20120718, end: 20121001
  2. RIBAPAK [Suspect]
     Indication: HEPATITIS C
     Dosage: UNK, BID
     Route: 048
     Dates: start: 20120718, end: 20121021
  3. PEGASYS [Suspect]
     Indication: HEPATITIS C
     Dosage: QW
     Route: 058
     Dates: start: 20120718, end: 20121021

REACTIONS (3)
  - Onychomadesis [Not Recovered/Not Resolved]
  - Rash macular [Recovered/Resolved]
  - Pruritus [Not Recovered/Not Resolved]
